FAERS Safety Report 15704514 (Version 2)
Quarter: 2020Q4

REPORT INFORMATION
  Report Type: Spontaneous
  Country: US (occurrence: US)
  Receive Date: 20181210
  Receipt Date: 20201020
  Transmission Date: 20210113
  Serious: Yes (Other)
  Sender: FDA-Public Use
  Company Number: US-PFIZER INC-2018504678

PATIENT
  Age: 72 Year
  Sex: Female
  Weight: 117.9 kg

DRUGS (9)
  1. LOSARTAN POTASSIUM. [Concomitant]
     Active Substance: LOSARTAN POTASSIUM
     Indication: HYPERTENSION
     Dosage: 100 MG, DAILY
  2. PYRIDOSTIGMINE BROMIDE. [Concomitant]
     Active Substance: PYRIDOSTIGMINE BROMIDE
     Indication: MYASTHENIA GRAVIS
     Dosage: 180 MG, EVERY 4 HOURS (NOT TO EXCEED 12 TABLETS IN 24 HOURS)
  3. TORSEMIDE. [Concomitant]
     Active Substance: TORSEMIDE
     Dosage: UNK
  4. AZATHIOPRINE. [Concomitant]
     Active Substance: AZATHIOPRINE
     Indication: MYASTHENIA GRAVIS
     Dosage: 50 MG, DAILY
  5. KLOR-CON [Concomitant]
     Active Substance: POTASSIUM CHLORIDE
     Dosage: UNK
  6. AMLODIPINE [Concomitant]
     Active Substance: AMLODIPINE BESYLATE
     Indication: HYPERTENSION
     Dosage: 2.5 MG, DAILY
  7. CELECOXIB. [Suspect]
     Active Substance: CELECOXIB
     Indication: PAIN
  8. PREDNISONE. [Concomitant]
     Active Substance: PREDNISONE
     Indication: MYASTHENIA GRAVIS
     Dosage: 7 MG, DAILY (3- 2.5 MG TABLETS)
  9. CELECOXIB. [Suspect]
     Active Substance: CELECOXIB
     Indication: ARTHRITIS
     Dosage: 2 ONE DAY AND 3 THE NEXT
     Dates: start: 201809

REACTIONS (5)
  - Off label use [Unknown]
  - Product use issue [Unknown]
  - Diarrhoea [Unknown]
  - Colon cancer [Unknown]
  - Drug ineffective [Unknown]
